FAERS Safety Report 9082614 (Version 1)
Quarter: 2013Q1

REPORT INFORMATION
  Report Type: Report from Study
  Country: DE (occurrence: DE)
  Receive Date: 20130131
  Receipt Date: 20130131
  Transmission Date: 20140127
  Serious: Yes (Hospitalization)
  Sender: FDA-Public Use
  Company Number: DE-AMGEN-DEUCT2013006363

PATIENT
  Age: 52 Year
  Sex: Female

DRUGS (7)
  1. ETANERCEPT [Suspect]
     Indication: RHEUMATOID ARTHRITIS
     Dosage: UNK
     Dates: start: 201004, end: 201007
  2. METHOTREXATE SODIUM [Suspect]
     Indication: RHEUMATOID ARTHRITIS
     Dosage: 15 MG, WEEKLY
     Route: 051
     Dates: start: 201006, end: 201210
  3. LEFLUNOMIDE [Suspect]
     Indication: RHEUMATOID ARTHRITIS
     Dosage: UNK
     Dates: start: 200705, end: 201006
  4. ADALIMUMAB [Suspect]
     Indication: RHEUMATOID ARTHRITIS
     Dosage: 40 MG, Q2WK
     Dates: start: 201007, end: 20121015
  5. PREDNISOLON                        /00016201/ [Concomitant]
     Dosage: 5 MG, 1X/DAY
  6. IBUPROFEN [Concomitant]
     Dosage: 800 MG, AS NEEDED
  7. CALCIUM CARBONATE W/COLECALCIFEROL [Concomitant]
     Dosage: 1000 UNK, 1X/DAY

REACTIONS (1)
  - Breast cancer female [Not Recovered/Not Resolved]
